FAERS Safety Report 5884977-3 (Version None)
Quarter: 2008Q3

REPORT INFORMATION
  Report Type: 
  Country: None (occurrence: None)
  Receive Date: 20080916
  Receipt Date: 20080901
  Transmission Date: 20090109
  Serious: No
  Sender: FDA-Public Use
  Company Number: CZ-ROCHE-584282

PATIENT
  Sex: Female

DRUGS (6)
  1. ROACCUTANE [Suspect]
     Indication: ACNE
     Dosage: STRENGTH: 10 AND 20 MG
     Route: 048
     Dates: start: 20080103, end: 20080209
  2. ROACCUTANE [Suspect]
     Route: 048
     Dates: start: 20080210, end: 20080310
  3. ROACCUTANE [Suspect]
     Route: 048
     Dates: start: 20080311, end: 20080409
  4. ROACCUTANE [Suspect]
     Route: 048
     Dates: start: 20080410
  5. ROACCUTANE [Suspect]
     Route: 048
     Dates: end: 20080515
  6. MIRENA [Concomitant]
     Route: 015

REACTIONS (2)
  - NO ADVERSE EVENT [None]
  - PREGNANCY [None]
